FAERS Safety Report 8540326 (Version 2)
Quarter: 2013Q1

REPORT INFORMATION
  Report Type: Spontaneous
  Country: US (occurrence: US)
  Receive Date: 20120502
  Receipt Date: 20130103
  Transmission Date: 20140127
  Serious: Yes (Hospitalization)
  Sender: FDA-Public Use
  Company Number: US-BAYER-2012-041654

PATIENT
  Age: 22 Year
  Sex: Female
  Weight: 60.32 kg

DRUGS (3)
  1. YAZ [Suspect]
     Indication: PREMENSTRUAL SYNDROME
     Dosage: UNK
     Dates: start: 200806, end: 200909
  2. FEXOFENADINE [Concomitant]
     Dosage: 180 MG, QD
     Route: 048
  3. TAGAMET [Concomitant]

REACTIONS (7)
  - Cholelithiasis [None]
  - Pancreatitis [None]
  - Cholecystitis chronic [None]
  - Pain [None]
  - Injury [None]
  - General physical health deterioration [None]
  - Emotional distress [None]
